FAERS Safety Report 6222713-1 (Version None)
Quarter: 2009Q2

REPORT INFORMATION
  Report Type: 
  Country: None (occurrence: None)
  Receive Date: 20090609
  Receipt Date: 20090609
  Transmission Date: 20091009
  Serious: Yes (Hospitalization)
  Sender: FDA-Public Use
  Company Number: None

PATIENT
  Age: 54 Year
  Sex: Male
  Weight: 92.0802 kg

DRUGS (2)
  1. VYTORIN [Suspect]
     Indication: ARTERIAL DISORDER
     Dates: start: 20080619, end: 20090608
  2. VYTORIN [Suspect]
     Indication: BLOOD CHOLESTEROL INCREASED
     Dates: start: 20080619, end: 20090608

REACTIONS (7)
  - AMNESIA [None]
  - ANXIETY [None]
  - DEPRESSION [None]
  - ERECTILE DYSFUNCTION [None]
  - INTERVERTEBRAL DISC DEGENERATION [None]
  - MYALGIA [None]
  - PARANOIA [None]
